FAERS Safety Report 7087940-2 (Version None)
Quarter: 2010Q4

REPORT INFORMATION
  Report Type: 
  Country: None (occurrence: None)
  Receive Date: 20101108
  Receipt Date: 20101027
  Transmission Date: 20110411
  Serious: Yes (Hospitalization)
  Sender: FDA-Public Use
  Company Number: CA-US-EMD SERONO, INC.-7004141

PATIENT
  Sex: Female

DRUGS (7)
  1. REBIF [Suspect]
     Indication: MULTIPLE SCLEROSIS
     Route: 058
     Dates: start: 20090501
  2. REBIF [Suspect]
     Route: 058
  3. APO-FENO [Concomitant]
  4. ASAPHEN [Concomitant]
  5. PERINDOPRIL ERBUMINE [Concomitant]
  6. NOVO-METROPOL [Concomitant]
  7. PMS-MIRTAZAPINE [Concomitant]

REACTIONS (2)
  - PSYCHOTIC DISORDER [None]
  - SOCIAL PROBLEM [None]
